FAERS Safety Report 26060201 (Version 1)
Quarter: 2025Q4

REPORT INFORMATION
  Report Type: Spontaneous
  Country: US (occurrence: US)
  Receive Date: 20251118
  Receipt Date: 20251118
  Transmission Date: 20260118
  Serious: No
  Sender: VERRICA PHARMACEUTICALS
  Company Number: US-VERRICA PHARMACEUTICALS INC.-2025VER000049

PATIENT

DRUGS (1)
  1. YCANTH [Suspect]
     Active Substance: CANTHARIDIN
     Indication: Molluscum contagiosum
     Dosage: UNK
     Route: 061
     Dates: start: 202508

REACTIONS (7)
  - Blister rupture [Recovering/Resolving]
  - Condition aggravated [Recovering/Resolving]
  - Skin abrasion [Recovering/Resolving]
  - Haemorrhage [Recovering/Resolving]
  - Skin exfoliation [Recovering/Resolving]
  - Eczema [Recovering/Resolving]
  - Scratch [Recovering/Resolving]

NARRATIVE: CASE EVENT DATE: 20250101
